FAERS Safety Report 23808858 (Version 3)
Quarter: 2025Q2

REPORT INFORMATION
  Report Type: Report from Study
  Country: MX (occurrence: MX)
  Receive Date: 20240502
  Receipt Date: 20250428
  Transmission Date: 20250716
  Serious: Yes (Hospitalization, Other)
  Sender: NOVARTIS
  Company Number: MX-002147023-NVSC2024MX091687

PATIENT
  Age: 77 Year
  Sex: Female
  Weight: 60 kg

DRUGS (7)
  1. TASIGNA [Suspect]
     Active Substance: NILOTINIB
     Indication: Chronic myeloid leukaemia
     Dosage: 200 MG, Q12H (2)
     Route: 048
     Dates: start: 202402, end: 202404
  2. TASIGNA [Suspect]
     Active Substance: NILOTINIB
     Dosage: 200 MG, TID (MORNING AFTERNOON NIGHT)
     Route: 048
     Dates: start: 202404
  3. TASIGNA [Suspect]
     Active Substance: NILOTINIB
     Route: 048
  4. IMATINIB [Suspect]
     Active Substance: IMATINIB
     Indication: Chronic myeloid leukaemia
     Dosage: 100 MG, Q12H
     Route: 048
     Dates: start: 2004, end: 202402
  5. LEVOTHYROXINE SODIUM [Concomitant]
     Active Substance: LEVOTHYROXINE SODIUM
     Indication: Thyroid disorder
     Dosage: 100 MG, QD (STARTED SEVERAL YEARS AGO)
     Route: 048
  6. ALPRAZOLAM [Concomitant]
     Active Substance: ALPRAZOLAM
     Indication: Sleep disorder
     Dosage: 1 DOSAGE FORM, QD (AT NIGHT) (STARTED SEVERAL YEARS AGO)
     Route: 048
  7. AMLODIPINE, VALSARTAN, HYDROCHLOROTHIAZIDE [Concomitant]
     Active Substance: AMLODIPINE BESYLATE\HYDROCHLOROTHIAZIDE\VALSARTAN
     Indication: Hypertension
     Dosage: 1 DOSAGE FORM, QD
     Route: 048

REACTIONS (13)
  - Fall [Recovered/Resolved with Sequelae]
  - Upper limb fracture [Recovered/Resolved with Sequelae]
  - Syncope [Not Recovered/Not Resolved]
  - Memory impairment [Not Recovered/Not Resolved]
  - Fall [Recovered/Resolved]
  - Upper limb fracture [Recovered/Resolved]
  - Rash [Recovered/Resolved]
  - Gastritis [Not Recovered/Not Resolved]
  - Blood pressure increased [Recovered/Resolved]
  - Balance disorder [Unknown]
  - Fall [Unknown]
  - Visual impairment [Unknown]
  - Body height decreased [Unknown]

NARRATIVE: CASE EVENT DATE: 20240201
